FAERS Safety Report 5385708-6 (Version None)
Quarter: 2007Q3

REPORT INFORMATION
  Report Type: 
  Country: None (occurrence: None)
  Receive Date: 20070712
  Receipt Date: 20070321
  Transmission Date: 20080115
  Serious: No
  Sender: FDA-Public Use
  Company Number: US-2007-004611

PATIENT
  Age: 29 Year
  Sex: Female
  Weight: 75 kg

DRUGS (3)
  1. YASMIN [Suspect]
     Indication: ABDOMINAL PAIN
     Dosage: 1 TAB(S), 1X/DAY, ORAL
     Route: 048
     Dates: start: 20060101
  2. ELAVIL [Concomitant]
  3. DIHYDROERGOTAMINE MESYLATE [Concomitant]

REACTIONS (2)
  - CHOLELITHIASIS [None]
  - METRORRHAGIA [None]
